FAERS Safety Report 15497209 (Version 1)
Quarter: 2018Q4

REPORT INFORMATION
  Report Type: Spontaneous
  Country: US (occurrence: US)
  Receive Date: 20181013
  Receipt Date: 20181013
  Transmission Date: 20190205
  Serious: Yes (Other)
  Sender: FDA-Public Use
  Company Number: None

PATIENT
  Age: 64 Year
  Sex: Female
  Weight: 85.5 kg

DRUGS (1)
  1. EUCRISA [Suspect]
     Active Substance: CRISABOROLE
     Indication: ECZEMA
     Route: 061
     Dates: start: 20181008, end: 20181009

REACTIONS (2)
  - Sunburn [None]
  - Application site pain [None]

NARRATIVE: CASE EVENT DATE: 20181008
